FAERS Safety Report 7068622-X (Version None)
Quarter: 2010Q4

REPORT INFORMATION
  Report Type: 
  Country: None (occurrence: None)
  Receive Date: 20101020
  Receipt Date: 20100712
  Transmission Date: 20110411
  Serious: Yes (Other)
  Sender: FDA-Public Use
  Company Number: 0212373

PATIENT
  Age: 50 Year
  Sex: Female

DRUGS (4)
  1. TACHOSIL [Suspect]
     Indication: HAEMOSTASIS
     Dates: start: 20100222
  2. LOVENOX [Concomitant]
  3. ANAEROBEX (METRONIDAZOLE) [Concomitant]
  4. CUROCEF (CEFUROXIME SODIUM) [Concomitant]

REACTIONS (2)
  - ADHESION [None]
  - PRODUCT QUALITY ISSUE [None]
